FAERS Safety Report 9038048 (Version 1)
Quarter: 2013Q1

REPORT INFORMATION
  Report Type: Spontaneous
  Country: US (occurrence: US)
  Receive Date: 20130129
  Receipt Date: 20130129
  Transmission Date: 20140127
  Serious: No
  Sender: FDA-Public Use
  Company Number: US-009507513-1301USA013197

PATIENT
  Age: 7 Year
  Sex: Female

DRUGS (2)
  1. MIRALAX [Suspect]
     Indication: CONSTIPATION
     Dosage: UNK UNK, PRN
     Route: 048
  2. MIRALAX [Suspect]
     Indication: MEDICAL OBSERVATION
     Dosage: 17 G, TID
     Route: 048

REACTIONS (5)
  - Malaise [Unknown]
  - Diarrhoea [Unknown]
  - Overdose [Unknown]
  - Drug administered to patient of inappropriate age [Unknown]
  - Off label use [Unknown]
